FAERS Safety Report 14344984 (Version 2)
Quarter: 2018Q1

REPORT INFORMATION
  Report Type: Spontaneous
  Country: TH (occurrence: TH)
  Receive Date: 20180103
  Receipt Date: 20180111
  Transmission Date: 20180509
  Serious: Yes (Other)
  Sender: FDA-Public Use
  Company Number: TH-ORION CORPORATION ORION PHARMA-ENT 2018-0001

PATIENT
  Age: 77 Year
  Sex: Female

DRUGS (3)
  1. TRIHEXYPHENIDYL [Concomitant]
     Active Substance: TRIHEXYPHENIDYL
     Dosage: 2 OT
     Route: 065
  2. ENTACAPONE (TRADE NAME UNKNOWN) [Suspect]
     Active Substance: ENTACAPONE
     Dosage: STRENGTH: 200 MG
     Route: 065
  3. LEVODOPA/CARBIDOPA [Concomitant]
     Active Substance: CARBIDOPA\LEVODOPA
     Dosage: 125 OT
     Route: 065

REACTIONS (3)
  - Mini mental status examination abnormal [Unknown]
  - Dementia [Unknown]
  - Hypoacusis [Unknown]

NARRATIVE: CASE EVENT DATE: 200707
